FAERS Safety Report 7420165-7 (Version None)
Quarter: 2011Q2

REPORT INFORMATION
  Report Type: 
  Country: None (occurrence: None)
  Receive Date: 20110418
  Receipt Date: 20110412
  Transmission Date: 20111010
  Serious: Yes (Hospitalization, Other)
  Sender: FDA-Public Use
  Company Number: CH-PFIZER INC-2011080206

PATIENT
  Age: 75 Year
  Sex: Female

DRUGS (3)
  1. EFFEXOR [Suspect]
     Dosage: 150 MG, 1X/DAY
  2. EFFEXOR [Suspect]
     Dosage: 187.5 MG PER DAY
  3. EFFEXOR [Suspect]
     Dosage: 225 MG PER DAY

REACTIONS (3)
  - BLOOD CHOLESTEROL INCREASED [None]
  - LOW DENSITY LIPOPROTEIN INCREASED [None]
  - UROSEPSIS [None]
